FAERS Safety Report 16564263 (Version 2)
Quarter: 2019Q3

REPORT INFORMATION
  Report Type: Spontaneous
  Country: US (occurrence: US)
  Receive Date: 20190712
  Receipt Date: 20190712
  Transmission Date: 20191004
  Serious: Yes (Other)
  Sender: FDA-Public Use
  Company Number: US-CELGENEUS-USA-20190702551

PATIENT
  Age: 84 Year
  Sex: Female
  Weight: 82.55 kg

DRUGS (1)
  1. POMALYST [Suspect]
     Active Substance: POMALIDOMIDE
     Indication: PLASMA CELL MYELOMA
     Dosage: 3 MILLIGRAM
     Route: 048
     Dates: start: 20190313, end: 20190705

REACTIONS (3)
  - Hallucination [Unknown]
  - Nervousness [Unknown]
  - Rash [Unknown]

NARRATIVE: CASE EVENT DATE: 2019
